FAERS Safety Report 13680531 (Version 2)
Quarter: 2017Q3

REPORT INFORMATION
  Report Type: Report from Study
  Country: US (occurrence: US)
  Receive Date: 20170623
  Receipt Date: 20170719
  Transmission Date: 20171127
  Serious: No
  Sender: FDA-Public Use
  Company Number: US-ALEXION PHARMACEUTICALS INC.-A201706930

PATIENT
  Sex: Female

DRUGS (1)
  1. STRENSIQ [Suspect]
     Active Substance: ASFOTASE ALFA
     Indication: HYPOPHOSPHATASIA
     Dosage: 53 MG, SIX TIMES A WEEK
     Route: 058

REACTIONS (2)
  - Influenza like illness [Unknown]
  - Bronchitis [Unknown]

NARRATIVE: CASE EVENT DATE: 20170617
